FAERS Safety Report 25963822 (Version 1)
Quarter: 2025Q4

REPORT INFORMATION
  Report Type: Spontaneous
  Country: US (occurrence: US)
  Receive Date: 20251027
  Receipt Date: 20251027
  Transmission Date: 20260117
  Serious: No
  Sender: MYLAN
  Company Number: US-MYLANLABS-2025M1089293

PATIENT
  Age: 74 Year
  Sex: Female

DRUGS (2)
  1. DOXEPIN [Suspect]
     Active Substance: DOXEPIN
     Indication: Product used for unknown indication
     Dosage: UNK
  2. DUPIXENT [Suspect]
     Active Substance: DUPILUMAB
     Indication: Idiopathic urticaria
     Dosage: 300 MILLIGRAM (QOW)

REACTIONS (7)
  - Urticaria [Recovering/Resolving]
  - Lethargy [Unknown]
  - Balance disorder [Unknown]
  - Asthenia [Recovering/Resolving]
  - Insomnia [Unknown]
  - Fatigue [Recovering/Resolving]
  - Confusional state [Unknown]

NARRATIVE: CASE EVENT DATE: 20250301
